FAERS Safety Report 25207513 (Version 2)
Quarter: 2025Q2

REPORT INFORMATION
  Report Type: Report from Study
  Country: JP (occurrence: JP)
  Receive Date: 20250417
  Receipt Date: 20250509
  Transmission Date: 20250717
  Serious: Yes (Hospitalization)
  Sender: INSMED
  Company Number: JP-INSMED-2024-02212-JPAA

PATIENT
  Age: 81 Year
  Sex: Female

DRUGS (2)
  1. ARIKAYCE [Suspect]
     Active Substance: AMIKACIN
     Indication: Mycobacterium avium complex infection
     Route: 055
     Dates: start: 20240515, end: 202406
  2. ARIKAYCE [Suspect]
     Active Substance: AMIKACIN
     Route: 055
     Dates: start: 202406, end: 2025

REACTIONS (15)
  - Pyrexia [Recovered/Resolved]
  - Illness [Unknown]
  - Dyspnoea [Not Recovered/Not Resolved]
  - Physical deconditioning [Unknown]
  - Eye disorder [Unknown]
  - Urticaria [Unknown]
  - Drug eruption [Recovered/Resolved]
  - Pruritus [Unknown]
  - Cough [Recovering/Resolving]
  - Productive cough [Not Recovered/Not Resolved]
  - Dysphonia [Unknown]
  - Drug ineffective [Unknown]
  - Intentional dose omission [Unknown]
  - Device maintenance issue [Unknown]
  - Therapy interrupted [Unknown]

NARRATIVE: CASE EVENT DATE: 20240101
